FAERS Safety Report 10532214 (Version 5)
Quarter: 2014Q4

REPORT INFORMATION
  Report Type: Spontaneous
  Country: US (occurrence: US)
  Receive Date: 20141021
  Receipt Date: 20141216
  Transmission Date: 20150529
  Serious: Yes (Other)
  Sender: FDA-Public Use
  Company Number: US-PFIZER INC-2014284889

PATIENT
  Age: 67 Year
  Sex: Male
  Weight: 86.17 kg

DRUGS (8)
  1. LYRICA [Suspect]
     Active Substance: PREGABALIN
     Indication: NEUROPATHY PERIPHERAL
     Dosage: 50 MG, UNK
     Dates: start: 2013
  2. LYRICA [Suspect]
     Active Substance: PREGABALIN
     Dosage: 75 MG, UNK
  3. HYDROCODONE [Concomitant]
     Active Substance: HYDROCODONE
     Indication: PAIN
     Dosage: 10-325MG, 1-2 TABLETS, EVERY 4-6 HOURS AS NEEDED
     Route: 048
  4. HYDROCODONE [Concomitant]
     Active Substance: HYDROCODONE
     Indication: INJURY
  5. MORPHINE [Concomitant]
     Active Substance: MORPHINE
     Indication: BURSA INJURY
     Dosage: 116 ML, UNK (INFUSION PUMP)
  6. OXYBUTIN [Concomitant]
     Active Substance: OXYBUTYNIN
     Dosage: 5 MG, 2X/DAY (IN THE MORNING AND IN THE EVENING)
     Route: 048
  7. LYRICA [Suspect]
     Active Substance: PREGABALIN
     Dosage: 100 MG, 3X/DAY
  8. OXYGEN. [Concomitant]
     Active Substance: OXYGEN
     Dosage: UNK

REACTIONS (14)
  - Nerve injury [Unknown]
  - Dry mouth [Not Recovered/Not Resolved]
  - Pain [Unknown]
  - Weight decreased [Unknown]
  - Discomfort [Unknown]
  - Rash [Not Recovered/Not Resolved]
  - Hypoaesthesia [Unknown]
  - Increased appetite [Unknown]
  - Depressed mood [Unknown]
  - Swelling [Unknown]
  - Seizure [Unknown]
  - Renal disorder [Unknown]
  - Hot flush [Not Recovered/Not Resolved]
  - Dizziness [Unknown]

NARRATIVE: CASE EVENT DATE: 2014
